FAERS Safety Report 4847121-7 (Version None)
Quarter: 2005Q4

REPORT INFORMATION
  Report Type: 
  Country: None (occurrence: None)
  Receive Date: 20051205
  Receipt Date: 20051205
  Transmission Date: 20060501
  Serious: No
  Sender: FDA-Public Use
  Company Number: None

PATIENT
  Age: 58 Year
  Sex: Female

DRUGS (1)
  1. HYDROXYZINE [Suspect]
     Indication: CONVULSION
     Dosage: 25 MG AS NEEDED 388?
     Dates: start: 20051101

REACTIONS (7)
  - DISCOMFORT [None]
  - ERYTHEMA [None]
  - FEAR [None]
  - FORMICATION [None]
  - JOINT SWELLING [None]
  - PHARMACEUTICAL PRODUCT COMPLAINT [None]
  - SKIN BURNING SENSATION [None]
